FAERS Safety Report 17914409 (Version 1)
Quarter: 2020Q2

REPORT INFORMATION
  Report Type: Spontaneous
  Country: IT (occurrence: IT)
  Receive Date: 20200618
  Receipt Date: 20200618
  Transmission Date: 20200714
  Serious: Yes (Other)
  Sender: FDA-Public Use
  Company Number: IT-ELI_LILLY_AND_COMPANY-IT202006004155

PATIENT
  Age: 57 Year
  Sex: Female

DRUGS (7)
  1. DEPAKIN [Concomitant]
     Active Substance: VALPROATE SODIUM
     Indication: SCHIZOPHRENIA
     Dosage: UNK, UNKNOWN
     Route: 048
  2. VERZENIO [Suspect]
     Active Substance: ABEMACICLIB
     Indication: INVASIVE DUCTAL BREAST CARCINOMA
     Dosage: 300 MG, DAILY
     Route: 048
     Dates: start: 20200514, end: 20200603
  3. SERENASE [LORAZEPAM] [Concomitant]
     Indication: SCHIZOPHRENIA
     Dosage: UNK UNK, UNKNOWN
     Route: 048
  4. CARDICOR [Concomitant]
     Active Substance: BISOPROLOL
     Indication: HYPERTENSION
     Dosage: UNK UNK, UNKNOWN
     Route: 048
  5. OMEPRAZEN [OMEPRAZOLE] [Concomitant]
     Active Substance: OMEPRAZOLE
     Indication: PRODUCT USED FOR UNKNOWN INDICATION
     Dosage: UNK UNK, UNKNOWN
     Route: 048
  6. LETROZOLE. [Suspect]
     Active Substance: LETROZOLE
     Indication: INVASIVE DUCTAL BREAST CARCINOMA
     Dosage: 2.5 MG, DAILY
     Route: 048
     Dates: start: 20200514, end: 20200603
  7. OMEPRAZEN [OMEPRAZOLE] [Concomitant]
     Active Substance: OMEPRAZOLE
     Dosage: UNK UNK, UNKNOWN
     Route: 048

REACTIONS (2)
  - Vasculitis [Not Recovered/Not Resolved]
  - Rash [Not Recovered/Not Resolved]

NARRATIVE: CASE EVENT DATE: 20200527
